FAERS Safety Report 14448195 (Version 1)
Quarter: 2018Q1

REPORT INFORMATION
  Report Type: Spontaneous
  Country: FR (occurrence: FR)
  Receive Date: 20180126
  Receipt Date: 20180126
  Transmission Date: 20180509
  Serious: Yes (Other)
  Sender: FDA-Public Use
  Company Number: FR-B.I. PHARMACEUTICALS,INC./RIDGEFIELD-2018-BI-004886

PATIENT
  Age: 87 Year
  Sex: Male

DRUGS (1)
  1. TAMSULOSINA [Suspect]
     Active Substance: TAMSULOSIN HYDROCHLORIDE
     Indication: BLADDER DILATATION
     Route: 048
     Dates: start: 20180108, end: 20180111

REACTIONS (2)
  - Off label use [Unknown]
  - Miosis [Not Recovered/Not Resolved]

NARRATIVE: CASE EVENT DATE: 20180108
